FAERS Safety Report 25602587 (Version 1)
Quarter: 2025Q3

REPORT INFORMATION
  Report Type: Spontaneous
  Country: US (occurrence: US)
  Receive Date: 20250724
  Receipt Date: 20250724
  Transmission Date: 20251021
  Serious: Yes (Death, Hospitalization)
  Sender: NOVARTIS
  Company Number: US-002147023-NVSC2025US117596

PATIENT
  Age: 53 Year
  Sex: Female

DRUGS (6)
  1. DABRAFENIB [Suspect]
     Active Substance: DABRAFENIB
     Indication: Lung adenocarcinoma stage IV
     Route: 065
  2. DABRAFENIB [Suspect]
     Active Substance: DABRAFENIB
     Indication: Metastases to soft tissue
  3. DABRAFENIB [Suspect]
     Active Substance: DABRAFENIB
     Indication: Metastases to bone
  4. TRAMETINIB [Suspect]
     Active Substance: TRAMETINIB
     Indication: Lung adenocarcinoma stage IV
     Route: 065
  5. TRAMETINIB [Suspect]
     Active Substance: TRAMETINIB
     Indication: Metastases to soft tissue
  6. TRAMETINIB [Suspect]
     Active Substance: TRAMETINIB
     Indication: Metastases to bone

REACTIONS (3)
  - Cardiomyopathy [Fatal]
  - Ejection fraction decreased [Fatal]
  - Pleural effusion [Fatal]
